FAERS Safety Report 25734515 (Version 1)
Quarter: 2025Q3

REPORT INFORMATION
  Report Type: Spontaneous
  Country: CN (occurrence: CN)
  Receive Date: 20250828
  Receipt Date: 20250828
  Transmission Date: 20251021
  Serious: Yes (Other)
  Sender: RANBAXY
  Company Number: CN-SUN PHARMACEUTICAL INDUSTRIES LTD-2025R1-524503

PATIENT
  Age: 34 Year
  Sex: Male
  Weight: 65 kg

DRUGS (2)
  1. AMPHOTERICIN B [Suspect]
     Active Substance: AMPHOTERICIN B
     Indication: Alveolar proteinosis
     Route: 065
  2. FLUCYTOSINE [Suspect]
     Active Substance: FLUCYTOSINE
     Indication: Alveolar proteinosis
     Route: 048

REACTIONS (2)
  - Granuloma [Recovered/Resolved]
  - Blood creatinine increased [Recovered/Resolved]
